FAERS Safety Report 9393044 (Version 2)
Quarter: 2013Q4

REPORT INFORMATION
  Report Type: Spontaneous
  Country: US (occurrence: US)
  Receive Date: 20130710
  Receipt Date: 20131118
  Transmission Date: 20140711
  Serious: No
  Sender: FDA-Public Use
  Company Number: US-009507513-1307USA004121

PATIENT
  Age: 49 Year
  Sex: Male

DRUGS (3)
  1. VICTRELIS [Suspect]
     Indication: CHRONIC HEPATITIS C
     Dosage: 800 MG, TID
     Route: 048
     Dates: start: 20130612, end: 2013
  2. RIBAVIRIN (WARRICK) [Suspect]
     Indication: CHRONIC HEPATITIS C
     Route: 048
  3. PEGASYS [Suspect]
     Indication: CHRONIC HEPATITIS C

REACTIONS (3)
  - Rash pruritic [Unknown]
  - Eye swelling [Unknown]
  - Gastric infection [Unknown]
